FAERS Safety Report 4719107-4 (Version None)
Quarter: 2005Q3

REPORT INFORMATION
  Report Type: 
  Country: None (occurrence: None)
  Receive Date: 20050719
  Receipt Date: 20050630
  Transmission Date: 20060218
  Serious: Yes (Other)
  Sender: FDA-Public Use
  Company Number: L05-IND-02379-01

PATIENT
  Age: 32 Year
  Sex: Female

DRUGS (2)
  1. CARBAMAZEPINE [Suspect]
     Dosage: 600 MG QD
  2. CARBAMAZEPINE [Suspect]
     Dosage: 1000 MG QD

REACTIONS (2)
  - SINUS ARREST [None]
  - SYNCOPE [None]
